FAERS Safety Report 25091829 (Version 1)
Quarter: 2025Q1

REPORT INFORMATION
  Report Type: Report from Study
  Country: JP (occurrence: JP)
  Receive Date: 20250318
  Receipt Date: 20250318
  Transmission Date: 20250408
  Serious: Yes (Hospitalization)
  Sender: SERVIER
  Company Number: JP-SERVIER-S24016211

PATIENT

DRUGS (13)
  1. PEGASPARGASE [Suspect]
     Active Substance: PEGASPARGASE
     Indication: Angiocentric lymphoma
     Route: 065
     Dates: start: 20240701, end: 20240701
  2. PEGASPARGASE [Suspect]
     Active Substance: PEGASPARGASE
     Route: 065
     Dates: start: 20240802, end: 20240802
  3. PEGASPARGASE [Suspect]
     Active Substance: PEGASPARGASE
     Route: 065
     Dates: start: 20240830, end: 20240830
  4. DEXAMETHASONE [Suspect]
     Active Substance: DEXAMETHASONE
     Indication: Angiocentric lymphoma
     Route: 065
     Dates: start: 2024
  5. METHOTREXATE [Suspect]
     Active Substance: METHOTREXATE
     Indication: Angiocentric lymphoma
     Dates: start: 2024
  6. ETOPOSIDE [Suspect]
     Active Substance: ETOPOSIDE
     Indication: Angiocentric lymphoma
     Route: 065
     Dates: start: 2024
  7. IFOSFAMIDE [Suspect]
     Active Substance: IFOSFAMIDE
     Indication: Angiocentric lymphoma
     Route: 065
     Dates: start: 2024
  8. GRANISETRON [Concomitant]
     Active Substance: GRANISETRON
     Indication: Product used for unknown indication
     Route: 065
     Dates: start: 20240626, end: 20240829
  9. MESNA [Concomitant]
     Active Substance: MESNA
     Indication: Product used for unknown indication
     Route: 065
     Dates: start: 20240626, end: 20240829
  10. ISOVORIN [Concomitant]
     Active Substance: LEUCOVORIN CALCIUM
     Indication: Product used for unknown indication
     Route: 065
     Dates: start: 20240626, end: 20240827
  11. FILGRASTIM [Concomitant]
     Active Substance: FILGRASTIM
     Indication: Product used for unknown indication
     Route: 065
     Dates: start: 20240701
  12. GLYCYRRHIZIN [Concomitant]
     Active Substance: GLYCYRRHIZIN
     Indication: Product used for unknown indication
     Route: 065
     Dates: start: 20240701
  13. ASPARAGINASE [Concomitant]
     Active Substance: ASPARAGINASE
     Indication: Product used for unknown indication
     Route: 065

REACTIONS (3)
  - White blood cell count decreased [Recovered/Resolved]
  - Overdose [Recovered/Resolved]
  - Inappropriate schedule of product administration [Recovered/Resolved]

NARRATIVE: CASE EVENT DATE: 20240701
